FAERS Safety Report 13369815 (Version 3)
Quarter: 2017Q2

REPORT INFORMATION
  Report Type: Spontaneous
  Country: DE (occurrence: DE)
  Receive Date: 20170324
  Receipt Date: 20170512
  Transmission Date: 20170830
  Serious: Yes (Hospitalization, Other)
  Sender: FDA-Public Use
  Company Number: DE-AMGEN-DEUSP2017044070

PATIENT
  Age: 80 Year
  Sex: Female

DRUGS (2)
  1. PROLIA [Suspect]
     Active Substance: DENOSUMAB
     Indication: OSTEOPOROSIS
     Dosage: 60 MG, Q6MO (2 TIMES PER YEAR)
     Route: 065
     Dates: start: 20120312
  2. PROTELOS [Suspect]
     Active Substance: STRONTIUM RANELATE
     Indication: PRODUCT USED FOR UNKNOWN INDICATION
     Dosage: UNK UNK, Q6MO
     Route: 065

REACTIONS (11)
  - Vomiting [Unknown]
  - Lip swelling [Not Recovered/Not Resolved]
  - Abscess jaw [Unknown]
  - Inflammation [Unknown]
  - Weight decreased [Unknown]
  - Fall [Unknown]
  - Rheumatoid arthritis [Unknown]
  - Hypertension [Unknown]
  - Osteonecrosis of jaw [Unknown]
  - Stomatitis [Unknown]
  - Mouth swelling [Not Recovered/Not Resolved]
